FAERS Safety Report 7013731-4 (Version None)
Quarter: 2010Q3

REPORT INFORMATION
  Report Type: 
  Country: None (occurrence: None)
  Receive Date: 20100924
  Receipt Date: 20100916
  Transmission Date: 20110219
  Serious: Yes (Hospitalization, Other)
  Sender: FDA-Public Use
  Company Number: AU-PFIZER INC-2010098178

PATIENT
  Age: 69 Year
  Sex: Female

DRUGS (5)
  1. LIPITOR [Suspect]
     Indication: HYPERCHOLESTEROLAEMIA
     Dosage: 40 MG, 1X/DAY
     Route: 048
     Dates: start: 20080408, end: 20100503
  2. COVERSYL PLUS [Concomitant]
     Indication: HYPERTENSION
     Dosage: UNK, 1X/DAY
     Route: 048
  3. FELODIPINE [Concomitant]
     Dosage: 10 MG, 1X/DAY
  4. GLUCOSAMINE [Concomitant]
     Dosage: 50 MG, 2X/DAY
  5. SERETIDE [Concomitant]
     Dosage: UNK

REACTIONS (3)
  - ALANINE AMINOTRANSFERASE INCREASED [None]
  - ASPARTATE AMINOTRANSFERASE INCREASED [None]
  - MYOSITIS [None]
